FAERS Safety Report 4880173-7 (Version None)
Quarter: 2006Q1

REPORT INFORMATION
  Report Type: 
  Country: None (occurrence: None)
  Receive Date: 20060111
  Receipt Date: 20051229
  Transmission Date: 20060701
  Serious: Yes (Hospitalization, Other)
  Sender: FDA-Public Use
  Company Number: 2006001070

PATIENT
  Sex: Male
  Weight: 81.6475 kg

DRUGS (8)
  1. VIAGRA [Suspect]
     Indication: ERECTILE DYSFUNCTION
     Dosage: (50 MG), ORAL
     Route: 048
  2. PREDNISONE [Suspect]
     Indication: COLITIS ULCERATIVE
     Dosage: ORAL
     Route: 048
     Dates: start: 19980101, end: 20000101
  3. CAVERJECT [Suspect]
     Indication: ERECTILE DYSFUNCTION
  4. REMERON [Suspect]
     Indication: DEPRESSION
     Dosage: ORAL
     Route: 048
  5. METAMUCIL-2 [Concomitant]
  6. AMBIEN [Concomitant]
  7. OXYCONTIN [Concomitant]
  8. ALL OTHER THERAPEUTIC PRODUCTS (ALL OTHER THERAPEUTIC PRODUCTS) [Concomitant]

REACTIONS (12)
  - ANXIETY [None]
  - COLECTOMY [None]
  - DEPRESSION [None]
  - DRUG INEFFECTIVE [None]
  - ERECTILE DYSFUNCTION [None]
  - IMPAIRED HEALING [None]
  - INFECTION [None]
  - POST PROCEDURAL COMPLICATION [None]
  - RECTAL FISSURE [None]
  - SNEEZING [None]
  - SURGERY [None]
  - WOUND DEHISCENCE [None]
